FAERS Safety Report 4379398-9 (Version None)
Quarter: 2004Q2

REPORT INFORMATION
  Report Type: 
  Country: None (occurrence: None)
  Receive Date: 20040617
  Receipt Date: 20040614
  Transmission Date: 20050107
  Serious: Yes (Life-Threatening, Hospitalization)
  Sender: FDA-Public Use
  Company Number: US-BRISTOL-MYERS SQUIBB COMPANY-12612677

PATIENT
  Age: 71 Year
  Sex: Female
  Weight: 66 kg

DRUGS (1)
  1. TEQUIN [Suspect]
     Indication: ABDOMINAL PAIN
     Route: 042

REACTIONS (1)
  - SUPRAVENTRICULAR TACHYCARDIA [None]
